FAERS Safety Report 21589622 (Version 2)
Quarter: 2022Q4

REPORT INFORMATION
  Report Type: Spontaneous
  Country: US (occurrence: US)
  Receive Date: 20221114
  Receipt Date: 20221129
  Transmission Date: 20230112
  Serious: No
  Sender: FDA-Public Use
  Company Number: US-PFIZER INC-PV202200101530

PATIENT
  Age: 38 Year
  Sex: Female

DRUGS (3)
  1. EUCRISA [Suspect]
     Active Substance: CRISABOROLE
     Indication: Aortic aneurysm
     Dosage: 2% OINT (60GM) AAA HANDS BID
     Route: 061
  2. EUCRISA [Suspect]
     Active Substance: CRISABOROLE
     Indication: Eczema
  3. HALOBETASOL PROPIONATE [Suspect]
     Active Substance: HALOBETASOL PROPIONATE
     Indication: Aortic aneurysm
     Dosage: (50GM) AAA HANDS 1-2X/D PRN
     Route: 061

REACTIONS (4)
  - Off label use [Unknown]
  - Skin exfoliation [Unknown]
  - Skin fissures [Unknown]
  - Eczema [Unknown]
